FAERS Safety Report 17765094 (Version 1)
Quarter: 2020Q2

REPORT INFORMATION
  Report Type: Spontaneous
  Country: CN (occurrence: CN)
  Receive Date: 20200511
  Receipt Date: 20200511
  Transmission Date: 20200714
  Serious: Yes (Other)
  Sender: FDA-Public Use
  Company Number: CN-ALLERGAN-2018722US

PATIENT
  Sex: Female
  Weight: 45 kg

DRUGS (1)
  1. CEFTAZIDIME;AVIBACTAM - BP [Suspect]
     Active Substance: AVIBACTAM SODIUM\CEFTAZIDIME
     Indication: SYMPTOMATIC TREATMENT
     Dosage: 2.5 MG, QD
     Route: 041
     Dates: start: 20200412, end: 20200414

REACTIONS (2)
  - Epilepsy [Recovered/Resolved]
  - Heart rate increased [Recovered/Resolved]

NARRATIVE: CASE EVENT DATE: 202004
